FAERS Safety Report 18572811 (Version 1)
Quarter: 2020Q4

REPORT INFORMATION
  Report Type: Spontaneous
  Country: GR (occurrence: GR)
  Receive Date: 20201202
  Receipt Date: 20201202
  Transmission Date: 20210114
  Serious: Yes (Death, Other)
  Sender: FDA-Public Use
  Company Number: GR-SA-2020SA344679

PATIENT

DRUGS (3)
  1. LEVOTHYROXINE. [Concomitant]
     Active Substance: LEVOTHYROXINE
     Indication: HYPOTHYROIDISM
     Route: 065
  2. ENOXAPARIN SODIUM. [Suspect]
     Active Substance: ENOXAPARIN SODIUM
     Indication: VENOUS THROMBOSIS
     Dosage: 1 MG/KG, BID
     Route: 058
  3. ROMIPLOSTIM [Concomitant]
     Active Substance: ROMIPLOSTIM
     Indication: IMMUNE THROMBOCYTOPENIA
     Dosage: 1 MG/KG, QW
     Route: 065

REACTIONS (8)
  - Platelet count decreased [Unknown]
  - Death [Fatal]
  - Coma scale abnormal [Unknown]
  - Extradural haematoma [Unknown]
  - Subdural haematoma [Unknown]
  - Dysarthria [Unknown]
  - Brain oedema [Unknown]
  - Hernia [Unknown]
